FAERS Safety Report 25930712 (Version 1)
Quarter: 2025Q4

REPORT INFORMATION
  Report Type: Report from Study
  Country: CA (occurrence: CA)
  Receive Date: 20251016
  Receipt Date: 20251016
  Transmission Date: 20260117
  Serious: Yes (Hospitalization, Other)
  Sender: PFIZER
  Company Number: CA-PFIZER INC-202500202286

PATIENT
  Sex: Female
  Weight: 59 kg

DRUGS (3)
  1. MENINGOCOCCAL (GROUPS A, C, Y, W) CONJUGATE VACCINE NOS [Suspect]
     Active Substance: MENINGOCOCCAL (GROUPS A, C, Y, W) CONJUGATE VACCINE
     Indication: Immunisation
     Dosage: DOSE NUMBER UNKNOWN, SINGLE
  2. SOLIRIS [Suspect]
     Active Substance: ECULIZUMAB
     Indication: Paroxysmal nocturnal haemoglobinuria
     Dosage: 600 MG, WEEKLY
  3. SOLIRIS [Suspect]
     Active Substance: ECULIZUMAB
     Indication: Paroxysmal nocturnal haemoglobinuria
     Dosage: 900 MG, 1 EVERY 2 WEEKS

REACTIONS (15)
  - Vaccination site abscess [Recovered/Resolved]
  - Anogenital warts [Recovered/Resolved]
  - Asthma [Recovered/Resolved]
  - Blood lactate dehydrogenase increased [Recovered/Resolved]
  - Chest pain [Recovered/Resolved]
  - Dyspnoea exertional [Recovered/Resolved]
  - Gastritis erosive [Recovered/Resolved]
  - Haemolysis [Recovered/Resolved]
  - Hepatic enzyme increased [Recovered/Resolved]
  - Hypoaesthesia [Recovered/Resolved]
  - Keratoconus [Recovered/Resolved]
  - Nephrolithiasis [Recovered/Resolved]
  - Pain in extremity [Recovered/Resolved]
  - Palpitations [Recovered/Resolved]
  - Pancreatitis [Recovered/Resolved]
